FAERS Safety Report 9492337 (Version 1)
Quarter: 2013Q3

REPORT INFORMATION
  Report Type: Spontaneous
  Country: CA (occurrence: CA)
  Receive Date: 20130830
  Receipt Date: 20130830
  Transmission Date: 20140515
  Serious: Yes (Other)
  Sender: FDA-Public Use
  Company Number: CA-WATSON-2013-15076

PATIENT
  Age: 47 Year
  Sex: Female

DRUGS (1)
  1. CHLOROQUINE (UNKNOWN) [Suspect]
     Indication: SYSTEMIC LUPUS ERYTHEMATOSUS
     Dosage: 250 MG, 3/WEEK
     Route: 065

REACTIONS (1)
  - Maculopathy [Unknown]
